FAERS Safety Report 20638497 (Version 1)
Quarter: 2022Q1

REPORT INFORMATION
  Report Type: Report from Study
  Country: IN (occurrence: IN)
  Receive Date: 20220325
  Receipt Date: 20220325
  Transmission Date: 20220424
  Serious: Yes (Hospitalization, Other)
  Sender: FDA-Public Use
  Company Number: IN-NOVARTISPH-NVSC2020IN005605

PATIENT
  Age: 36 Year
  Sex: Male

DRUGS (1)
  1. SIMULECT [Suspect]
     Active Substance: BASILIXIMAB
     Indication: Renal transplant
     Dosage: 20 MG, QD
     Route: 042
     Dates: start: 20191230, end: 20200103

REACTIONS (7)
  - Kidney transplant rejection [Not Recovered/Not Resolved]
  - Glomerulonephritis [Unknown]
  - Ischaemia [Unknown]
  - Lymphocytic infiltration [Unknown]
  - Oedema [Unknown]
  - Capillaritis [Unknown]
  - Inappropriate schedule of product administration [Unknown]

NARRATIVE: CASE EVENT DATE: 20200108
